FAERS Safety Report 19808703 (Version 1)
Quarter: 2021Q3

REPORT INFORMATION
  Report Type: Other
  Country: CN (occurrence: CN)
  Receive Date: 20210908
  Receipt Date: 20210908
  Transmission Date: 20211014
  Serious: Yes (Other)
  Sender: FDA-Public Use
  Company Number: CN-ROCHE-2903170

PATIENT
  Sex: Female

DRUGS (28)
  1. BEVACIZUMAB. [Suspect]
     Active Substance: BEVACIZUMAB
     Indication: INTESTINAL OBSTRUCTION
  2. CARBOPLATIN. [Suspect]
     Active Substance: CARBOPLATIN
     Indication: OVARIAN CANCER RECURRENT
     Dosage: AUC=5  WAS DILUTED WITH 100 ML NORMAL SALINE (AUC=5),GIVEN BY PERFUSION THROUGH THE ABDOMINAL?DRAINA
     Route: 033
  3. OCTREOTIDE. [Suspect]
     Active Substance: OCTREOTIDE
     Indication: OVARIAN CANCER RECURRENT
     Dosage: OCTREOTIDE INJECTION (60 MG/D) FOR 3 CONSECUTIVE DAYS. AT THE SAME TIME, INTRAPERITONEAL PERFUSION W
     Route: 033
  4. PROMETHAZINE [Suspect]
     Active Substance: PROMETHAZINE HYDROCHLORIDE
     Indication: ADHESION
  5. DEXAMETHASONE. [Suspect]
     Active Substance: DEXAMETHASONE
     Indication: INTESTINAL OBSTRUCTION
  6. DEXAMETHASONE. [Suspect]
     Active Substance: DEXAMETHASONE
     Indication: OVARIAN CANCER RECURRENT
     Dosage: THEN 5 MG OF DEXAMETHASONE GIVEN BY INTRAMUSCULAR INJECTION AT THE SAME TIME
     Route: 030
  7. GEMCITABINE. [Suspect]
     Active Substance: GEMCITABINE
     Indication: INTESTINAL OBSTRUCTION
  8. GEMCITABINE. [Suspect]
     Active Substance: GEMCITABINE
     Indication: ADHESION
  9. CARBOPLATIN. [Suspect]
     Active Substance: CARBOPLATIN
     Indication: INTESTINAL OBSTRUCTION
  10. OCTREOTIDE. [Suspect]
     Active Substance: OCTREOTIDE
     Indication: OVARIAN CANCER
  11. OCTREOTIDE. [Suspect]
     Active Substance: OCTREOTIDE
     Indication: INTESTINAL OBSTRUCTION
  12. DEXAMETHASONE. [Suspect]
     Active Substance: DEXAMETHASONE
     Indication: ADHESION
  13. PROMETHAZINE [Suspect]
     Active Substance: PROMETHAZINE HYDROCHLORIDE
     Indication: INTESTINAL OBSTRUCTION
  14. LIDOCAINE CARBONATE. [Suspect]
     Active Substance: LIDOCAINE CARBONATE
     Indication: OVARIAN CANCER RECURRENT
     Route: 030
  15. BEVACIZUMAB. [Suspect]
     Active Substance: BEVACIZUMAB
     Indication: OVARIAN CANCER RECURRENT
     Dosage: THE PATIENTS RESTED IN BED FOR 2 HOURS AFTER INTRAPERITONEAL PERFUSION AND TURNED OVER EVERY 15 MINU
     Route: 033
  16. GEMCITABINE. [Suspect]
     Active Substance: GEMCITABINE
     Indication: OVARIAN CANCER
  17. CARBOPLATIN. [Suspect]
     Active Substance: CARBOPLATIN
     Indication: ADHESION
  18. DEXAMETHASONE. [Suspect]
     Active Substance: DEXAMETHASONE
     Indication: OVARIAN CANCER
  19. LIDOCAINE CARBONATE. [Suspect]
     Active Substance: LIDOCAINE CARBONATE
     Indication: ADHESION
  20. BEVACIZUMAB. [Suspect]
     Active Substance: BEVACIZUMAB
     Indication: ADHESION
  21. PROMETHAZINE [Suspect]
     Active Substance: PROMETHAZINE HYDROCHLORIDE
     Indication: OVARIAN CANCER RECURRENT
     Route: 030
  22. PROMETHAZINE [Suspect]
     Active Substance: PROMETHAZINE HYDROCHLORIDE
     Indication: OVARIAN CANCER
  23. BEVACIZUMAB. [Suspect]
     Active Substance: BEVACIZUMAB
     Indication: OVARIAN CANCER
  24. GEMCITABINE. [Suspect]
     Active Substance: GEMCITABINE
     Indication: OVARIAN CANCER RECURRENT
     Route: 033
  25. CARBOPLATIN. [Suspect]
     Active Substance: CARBOPLATIN
     Indication: OVARIAN CANCER
  26. OCTREOTIDE. [Suspect]
     Active Substance: OCTREOTIDE
     Indication: ADHESION
  27. LIDOCAINE CARBONATE. [Suspect]
     Active Substance: LIDOCAINE CARBONATE
     Indication: OVARIAN CANCER
  28. LIDOCAINE CARBONATE. [Suspect]
     Active Substance: LIDOCAINE CARBONATE
     Indication: INTESTINAL OBSTRUCTION

REACTIONS (1)
  - Agranulocytosis [Unknown]
